FAERS Safety Report 6062134-8 (Version None)
Quarter: 2009Q1

REPORT INFORMATION
  Report Type: 
  Country: None (occurrence: None)
  Receive Date: 20090130
  Receipt Date: 20090130
  Transmission Date: 20090719
  Serious: Yes (Hospitalization)
  Sender: FDA-Public Use
  Company Number: None

PATIENT
  Age: 57 Year
  Sex: Female

DRUGS (1)
  1. TASIGNA [Suspect]
     Indication: CHRONIC MYELOID LEUKAEMIA
     Dosage: 400MG TWICE DAILY PO
     Route: 048
     Dates: start: 20090123, end: 20090124

REACTIONS (4)
  - CHEST PAIN [None]
  - DYSPNOEA [None]
  - PARAESTHESIA [None]
  - RASH PRURITIC [None]
